FAERS Safety Report 4626411-7 (Version None)
Quarter: 2005Q1

REPORT INFORMATION
  Report Type: 
  Country: None (occurrence: None)
  Receive Date: 20050330
  Receipt Date: 20050317
  Transmission Date: 20050727
  Serious: Yes (Life-Threatening)
  Sender: FDA-Public Use
  Company Number: 2005046970

PATIENT
  Age: 72 Year
  Sex: Male

DRUGS (2)
  1. CABERGOLINE [Suspect]
     Indication: ILL-DEFINED DISORDER
     Dosage: 2 MG (2 MG, DAILY), ORAL
     Route: 048
     Dates: start: 20050121, end: 20050127
  2. LEBOCAR (CARBIDOPA, LEVODOPA) [Suspect]
     Indication: EXTRAPYRAMIDAL DISORDER
     Dosage: 250 MG + 25 MG (TID), ORAL
     Route: 048
     Dates: start: 20050121, end: 20050127

REACTIONS (2)
  - AMAUROSIS FUGAX [None]
  - SOMNOLENCE [None]
